FAERS Safety Report 13538828 (Version 2)
Quarter: 2017Q4

REPORT INFORMATION
  Report Type: Spontaneous
  Country: US (occurrence: US)
  Receive Date: 20170512
  Receipt Date: 20171128
  Transmission Date: 20180320
  Serious: No
  Sender: FDA-Public Use
  Company Number: US-JNJFOC-20170315463

PATIENT
  Sex: Male

DRUGS (2)
  1. INVEGA [Suspect]
     Active Substance: PALIPERIDONE
     Indication: INTERMITTENT EXPLOSIVE DISORDER
     Dosage: IN VARYING DOSES OF 6 MG AND 9 MG
     Route: 048
     Dates: start: 20140728, end: 20141223
  2. INVEGA [Suspect]
     Active Substance: PALIPERIDONE
     Indication: SCHIZOAFFECTIVE DISORDER
     Dosage: IN VARYING DOSES OF 6 MG AND 9 MG
     Route: 048
     Dates: start: 20140728, end: 20141223

REACTIONS (2)
  - Gynaecomastia [Unknown]
  - Emotional disorder [Unknown]
